FAERS Safety Report 9034117 (Version 1)
Quarter: 2013Q1

REPORT INFORMATION
  Report Type: Spontaneous
  Country: US (occurrence: None)
  Receive Date: 20130116
  Receipt Date: 20130116
  Transmission Date: 20140127
  Serious: Yes (Hospitalization, Other)
  Sender: FDA-Public Use
  Company Number: None

PATIENT
  Age: 31 Year
  Sex: Female
  Weight: 52.16 kg

DRUGS (1)
  1. METOPROLOL [Suspect]
     Indication: MIGRAINE PROPHYLAXIS
     Route: 048
     Dates: start: 20130108, end: 20130109

REACTIONS (5)
  - Dysphemia [None]
  - Fluid retention [None]
  - Swelling face [None]
  - Local swelling [None]
  - Local swelling [None]
